FAERS Safety Report 7424308-0 (Version None)
Quarter: 2011Q2

REPORT INFORMATION
  Report Type: 
  Country: None (occurrence: None)
  Receive Date: 20110419
  Receipt Date: 20110415
  Transmission Date: 20111010
  Serious: Yes (Hospitalization)
  Sender: FDA-Public Use
  Company Number: SE-PFIZER INC-2009177175

PATIENT
  Age: 78 Year
  Sex: Male
  Weight: 75.7 kg

DRUGS (10)
  1. BLINDED EPLERENONE [Suspect]
     Indication: CARDIAC FAILURE
     Dosage: UNK,OD
     Route: 048
     Dates: start: 20071214
  2. METOPROLOL SUCCINATE [Concomitant]
     Route: 048
     Dates: start: 20071009
  3. BLINDED NO SUBJECT DRUG [Suspect]
     Indication: CARDIAC FAILURE
     Dosage: UNK,OD
     Route: 048
     Dates: start: 20071214
  4. ZOPICLONE [Concomitant]
     Dosage: UNK
     Route: 048
     Dates: start: 20090105
  5. SIMVASTATIN [Concomitant]
     Route: 048
     Dates: start: 20071214
  6. WARFARIN [Concomitant]
     Route: 048
     Dates: start: 20081010
  7. BLINDED PLACEBO [Suspect]
     Indication: CARDIAC FAILURE
     Dosage: UNK,OD
     Route: 048
     Dates: start: 20071214
  8. AMLODIPINE BESILATE [Concomitant]
     Dosage: UNK
     Route: 048
     Dates: start: 20080826
  9. ENALAPRIL MALEATE [Concomitant]
     Route: 048
     Dates: start: 20071204
  10. GAVISCON [Concomitant]
     Dosage: UNK
     Route: 048
     Dates: start: 20071003

REACTIONS (1)
  - BRONCHITIS [None]
